FAERS Safety Report 7410582-3 (Version None)
Quarter: 2011Q2

REPORT INFORMATION
  Report Type: 
  Country: None (occurrence: None)
  Receive Date: 20110413
  Receipt Date: 20080924
  Transmission Date: 20111010
  Serious: No
  Sender: FDA-Public Use
  Company Number: 2008BI025641

PATIENT
  Age: 48 Year
  Sex: Male

DRUGS (4)
  1. TYSABRI [Suspect]
     Route: 042
     Dates: start: 20100901, end: 20101101
  2. TYSABRI [Suspect]
     Route: 042
     Dates: start: 20110301
  3. TYSABRI [Suspect]
     Route: 042
     Dates: start: 20101101, end: 20110201
  4. TYSABRI [Suspect]
     Indication: CROHN'S DISEASE
     Route: 042
     Dates: start: 20080815, end: 20081110

REACTIONS (7)
  - INSOMNIA [None]
  - DIZZINESS [None]
  - ASTHENIA [None]
  - HEADACHE [None]
  - NAUSEA [None]
  - SENSORY DISTURBANCE [None]
  - FATIGUE [None]
